FAERS Safety Report 9426476 (Version 1)
Quarter: 2013Q3

REPORT INFORMATION
  Report Type: Spontaneous
  Country: US (occurrence: None)
  Receive Date: 20130729
  Receipt Date: 20130729
  Transmission Date: 20140515
  Serious: Yes (Disabling)
  Sender: FDA-Public Use
  Company Number: None

PATIENT
  Age: 32 Year
  Sex: Female

DRUGS (1)
  1. LYRICA 75 MG PFIZER [Suspect]
     Indication: NEURALGIA
     Dosage: 1 TIME A DAY
     Route: 048

REACTIONS (3)
  - Hypoaesthesia [None]
  - Tenderness [None]
  - Paraesthesia [None]
